FAERS Safety Report 9098011 (Version 2)
Quarter: 2013Q1

REPORT INFORMATION
  Report Type: Spontaneous
  Country: IN (occurrence: IN)
  Receive Date: 20130212
  Receipt Date: 20130226
  Transmission Date: 20140127
  Serious: Yes (Hospitalization)
  Sender: FDA-Public Use
  Company Number: IN-BRISTOL-MYERS SQUIBB COMPANY-17365560

PATIENT
  Age: 26 Year
  Sex: Female

DRUGS (8)
  1. METFORMIN HCL [Suspect]
     Indication: TYPE 2 DIABETES MELLITUS
     Dosage: 1000 MG FROM 19-JAN-2010 TO 06-MAY-2010
     Route: 048
     Dates: start: 20100506
  2. FERROUS FUMARATE + FOLIC ACID [Concomitant]
     Route: 048
     Dates: start: 20100119, end: 20111114
  3. FOLIC ACID [Concomitant]
     Route: 048
     Dates: start: 20100119, end: 20111114
  4. CYANOCOBALAMIN [Concomitant]
     Route: 048
     Dates: start: 20100119, end: 20111114
  5. FERROUS FUMARATE [Concomitant]
     Route: 048
     Dates: start: 20100119, end: 20111114
  6. ZINC SULFATE [Concomitant]
     Route: 048
     Dates: start: 20100119, end: 20111114
  7. PANTOPRAZOLE [Concomitant]
     Dosage: 15JUL10-16SEP10,40MG?27SEP10-01OCT10,80MG?11OCT10-ONG,40MG
     Dates: start: 20100715
  8. DOMPERIDONE [Concomitant]
     Dosage: 15JUL10-26SEP10,10MG?27SEP-01OCT10,30MG?11OCT10-ONG,10MG
     Route: 048
     Dates: start: 20100715

REACTIONS (3)
  - Renal colic [Recovered/Resolved]
  - Polycystic ovaries [Unknown]
  - Upper respiratory tract infection [Unknown]
